FAERS Safety Report 12063720 (Version 1)
Quarter: 2016Q1

REPORT INFORMATION
  Report Type: Report from Study
  Country: US (occurrence: US)
  Receive Date: 20160210
  Receipt Date: 20160210
  Transmission Date: 20160526
  Serious: No
  Sender: FDA-Public Use
  Company Number: US-ABBVIE-15P-163-1518295-00

PATIENT
  Age: 14 Year
  Sex: Female

DRUGS (1)
  1. HUMIRA [Suspect]
     Active Substance: ADALIMUMAB
     Indication: JUVENILE IDIOPATHIC ARTHRITIS
     Route: 058
     Dates: start: 20150928

REACTIONS (4)
  - Oropharyngeal pain [Unknown]
  - Nausea [Unknown]
  - Respiratory tract congestion [Unknown]
  - Headache [Unknown]

NARRATIVE: CASE EVENT DATE: 201511
